FAERS Safety Report 9226797 (Version 1)
Quarter: 2013Q2

REPORT INFORMATION
  Report Type: Spontaneous
  Country: US (occurrence: None)
  Receive Date: 20130410
  Receipt Date: 20130410
  Transmission Date: 20140414
  Serious: Yes (Life-Threatening, Hospitalization, Congenital Anomaly)
  Sender: FDA-Public Use
  Company Number: SYM-2013-02269

PATIENT
  Sex: Male

DRUGS (1)
  1. WELLBUTRIN [Suspect]
     Indication: PRODUCT USED FOR UNKNOWN INDICATION
     Route: 064

REACTIONS (8)
  - Maternal drugs affecting foetus [None]
  - Bicuspid aortic valve [None]
  - Hydrocephalus [None]
  - Respiratory syncytial virus infection [None]
  - Beta haemolytic streptococcal infection [None]
  - Shunt infection [None]
  - Convulsion [None]
  - Agitation [None]
